FAERS Safety Report 23384241 (Version 1)
Quarter: 2024Q1

REPORT INFORMATION
  Report Type: Spontaneous
  Country: IT (occurrence: IT)
  Receive Date: 20240109
  Receipt Date: 20240109
  Transmission Date: 20240410
  Serious: Yes (Other)
  Sender: FDA-Public Use
  Company Number: IT-ELI_LILLY_AND_COMPANY-IT202401001500

PATIENT
  Sex: Male

DRUGS (1)
  1. SELPERCATINIB [Suspect]
     Active Substance: SELPERCATINIB
     Indication: Thyroid cancer
     Dosage: 160 MG, BID
     Route: 065

REACTIONS (4)
  - Pneumomediastinum [Recovered/Resolved]
  - Haematocrit increased [Recovering/Resolving]
  - Vocal cord paralysis [Recovering/Resolving]
  - Mobility decreased [Not Recovered/Not Resolved]
